FAERS Safety Report 14074340 (Version 2)
Quarter: 2017Q4

REPORT INFORMATION
  Report Type: Report from Study
  Country: CA (occurrence: CA)
  Receive Date: 20171011
  Receipt Date: 20171025
  Transmission Date: 20180321
  Serious: Yes (Other)
  Sender: FDA-Public Use
  Company Number: CA-GLAXOSMITHKLINE-CA2017GSK154866

PATIENT
  Age: 63 Year
  Sex: Female

DRUGS (1)
  1. MEPOLIZUMAB [Suspect]
     Active Substance: MEPOLIZUMAB
     Indication: ASTHMA
     Dosage: 100 MG, Z
     Route: 042
     Dates: start: 20170926

REACTIONS (10)
  - Dyspepsia [Unknown]
  - Drug hypersensitivity [Unknown]
  - Bone pain [Unknown]
  - Pyrexia [Unknown]
  - Nausea [Unknown]
  - Nasal discharge discolouration [Unknown]
  - Myalgia [Unknown]
  - Productive cough [Unknown]
  - Lung infection [Unknown]
  - Headache [Unknown]

NARRATIVE: CASE EVENT DATE: 20170928
